FAERS Safety Report 20495715 (Version 1)
Quarter: 2022Q1

REPORT INFORMATION
  Report Type: Spontaneous
  Country: GB (occurrence: GB)
  Receive Date: 20220221
  Receipt Date: 20220221
  Transmission Date: 20220423
  Serious: Yes (Hospitalization, Other)
  Sender: FDA-Public Use
  Company Number: GB-TEVA-2022-GB-2006212

PATIENT
  Age: 68 Year
  Sex: Female
  Weight: 92 kg

DRUGS (46)
  1. CIPROFLOXACIN [Suspect]
     Active Substance: CIPROFLOXACIN
     Indication: Product used for unknown indication
     Dosage: 1000 MILLIGRAM DAILY;
     Route: 065
     Dates: start: 20100917
  2. CIPROFLOXACIN [Suspect]
     Active Substance: CIPROFLOXACIN
     Indication: Depression
     Route: 065
  3. CIPROFLOXACIN [Suspect]
     Active Substance: CIPROFLOXACIN
     Indication: Abdominal discomfort
     Dosage: 1000 MILLIGRAM DAILY;
     Route: 065
     Dates: start: 20200917
  4. CIPROFLOXACIN [Suspect]
     Active Substance: CIPROFLOXACIN
     Indication: Rheumatoid arthritis
  5. IRBESARTAN [Suspect]
     Active Substance: IRBESARTAN
     Indication: Abdominal discomfort
     Dosage: 150 GRAM DAILY; ADDITIONAL INFO : OVERDOSE
     Route: 065
     Dates: start: 20100917
  6. IRBESARTAN [Suspect]
     Active Substance: IRBESARTAN
     Indication: Product used for unknown indication
  7. OMEPRAZOLE [Suspect]
     Active Substance: OMEPRAZOLE
     Indication: Abdominal discomfort
     Dosage: 40 MILLIGRAM DAILY; 20 MG, 2X/DAY FOR STOMACH;
     Route: 065
     Dates: start: 20100917
  8. OMEPRAZOLE [Suspect]
     Active Substance: OMEPRAZOLE
     Dosage: 20 MILLIGRAM DAILY; ADDITIONAL INFO : BATCH AND LOT TESTED AND FOUND WITHIN SPECIFICATIONS, MEDICATI
     Route: 065
     Dates: start: 20200917
  9. OMEPRAZOLE [Suspect]
     Active Substance: OMEPRAZOLE
     Dosage: 480 MILLIGRAM DAILY; 20 MG, 2X/DAY
     Route: 065
  10. OMEPRAZOLE [Suspect]
     Active Substance: OMEPRAZOLE
     Dosage: 480 MILLIGRAM DAILY; 20 MG, 2X/DAY
     Route: 065
  11. METHOTREXATE [Suspect]
     Active Substance: METHOTREXATE
     Indication: Rheumatoid arthritis
     Dosage: UNK UNK, WEEKLY (AT 17.5, WEEKLY)
     Route: 065
     Dates: start: 20100917
  12. METHOTREXATE [Suspect]
     Active Substance: METHOTREXATE
     Dosage: 17.5 MILLIGRAM, Q.W., UNK UNK, Q.W., WEEKLY, AT 17.5 (UNKNOWN UNIT),
     Route: 065
     Dates: start: 20100917
  13. METHOTREXATE [Suspect]
     Active Substance: METHOTREXATE
     Dosage: 17.5 MG
     Route: 065
     Dates: start: 20100917
  14. CARBOCYSTEINE [Suspect]
     Active Substance: CARBOCYSTEINE
     Indication: Product used for unknown indication
     Dosage: 750 MILLIGRAM DAILY; ADDITIONAL INFO: MEDICATION ERROR, MISUSE
     Route: 065
     Dates: start: 20100917
  15. CARBOCYSTEINE [Suspect]
     Active Substance: CARBOCYSTEINE
     Indication: Rheumatoid arthritis
     Dosage: 750 MILLIGRAM DAILY;
     Route: 065
     Dates: start: 20100917
  16. ENBREL [Suspect]
     Active Substance: ETANERCEPT
     Indication: Rheumatoid arthritis
     Dosage: 50 MG, WEEKLY , MYCLIC PENS
     Route: 058
     Dates: start: 20100917
  17. PHYLLOCONTIN [Suspect]
     Active Substance: AMINOPHYLLINE
     Indication: Product used for unknown indication
     Dosage: 400 MILLIGRAM DAILY;
     Route: 065
     Dates: start: 20100917
  18. VENLAFAXINE HYDROCHLORIDE [Suspect]
     Active Substance: VENLAFAXINE HYDROCHLORIDE
     Indication: Depression
     Dosage: 225 MILLIGRAM DAILY; PROLONGED RELEASE
     Route: 065
  19. VENLAFAXINE HYDROCHLORIDE [Suspect]
     Active Substance: VENLAFAXINE HYDROCHLORIDE
     Indication: Rheumatoid arthritis
     Route: 065
  20. CARBAMAZEPINE [Suspect]
     Active Substance: CARBAMAZEPINE
     Indication: Product used for unknown indication
     Dosage: 750 MILLIGRAM DAILY;
     Route: 065
  21. CARBAMAZEPINE [Suspect]
     Active Substance: CARBAMAZEPINE
     Dosage: 750 MILLIGRAM DAILY;
     Route: 065
  22. DITIOCARB ZINC [Suspect]
     Active Substance: DITIOCARB ZINC
     Indication: Product used for unknown indication
     Dosage: UNKNOWN
     Route: 065
  23. DITIOCARB ZINC [Suspect]
     Active Substance: DITIOCARB ZINC
     Indication: Depression
     Dosage: UNKNOWN
     Route: 065
  24. DITIOCARB ZINC [Suspect]
     Active Substance: DITIOCARB ZINC
     Indication: Abdominal discomfort
     Dosage: 750 MG
     Route: 065
  25. DITIOCARB ZINC [Suspect]
     Active Substance: DITIOCARB ZINC
     Dosage: 750 MG
     Route: 065
  26. DITIOCARB ZINC [Suspect]
     Active Substance: DITIOCARB ZINC
     Dosage: UNKNOWN
     Route: 065
  27. GUANIDINE [Suspect]
     Active Substance: GUANIDINE
     Indication: Abdominal discomfort
     Route: 065
  28. GUANIDINE [Suspect]
     Active Substance: GUANIDINE
     Indication: Product used for unknown indication
     Dosage: 750 MILLIGRAM DAILY;
     Route: 065
  29. GUANIDINE [Suspect]
     Active Substance: GUANIDINE
     Indication: Depression
     Dosage: UNKNOWN
     Route: 065
  30. GUANIDINE [Suspect]
     Active Substance: GUANIDINE
     Dosage: 1,3-DIPHENYLGUANIDINE
     Route: 065
  31. GUANIDINE [Suspect]
     Active Substance: GUANIDINE
     Dosage: 1,3-DIPHENYLGUANIDINE , UNIT DOSE : 750 MG
     Route: 065
  32. BENDROFLUMETHIAZIDE [Concomitant]
     Active Substance: BENDROFLUMETHIAZIDE
     Indication: Depression
     Dosage: UNK
     Route: 065
  33. BENDROFLUMETHIAZIDE [Concomitant]
     Active Substance: BENDROFLUMETHIAZIDE
     Indication: Pituitary tumour
     Dosage: UNK
     Route: 065
  34. BENDROFLUMETHIAZIDE [Concomitant]
     Active Substance: BENDROFLUMETHIAZIDE
     Dosage: UNK
     Route: 065
  35. CABERGOLINE [Concomitant]
     Active Substance: CABERGOLINE
     Indication: Pituitary tumour
     Dosage: UNK , UNK
  36. CABERGOLINE [Concomitant]
     Active Substance: CABERGOLINE
     Indication: Empty sella syndrome
     Dosage: UNK
  37. CABERGOLINE [Concomitant]
     Active Substance: CABERGOLINE
     Indication: Product used for unknown indication
     Dosage: UNK
  38. CABERGOLINE [Concomitant]
     Active Substance: CABERGOLINE
     Dosage: UNK
  39. CETIRIZINE [Concomitant]
     Active Substance: CETIRIZINE HYDROCHLORIDE
     Indication: Abdominal discomfort
     Route: 065
  40. CETIRIZINE [Concomitant]
     Active Substance: CETIRIZINE HYDROCHLORIDE
     Indication: Product used for unknown indication
     Route: 065
  41. EZETIMIBE [Concomitant]
     Active Substance: EZETIMIBE
     Indication: Product used for unknown indication
  42. FOLIC ACID [Concomitant]
     Active Substance: FOLIC ACID
     Indication: Product used for unknown indication
  43. LEVOTHYROXINE [Concomitant]
     Active Substance: LEVOTHYROXINE
     Indication: Abdominal discomfort
     Dosage: UNKNOWN
     Route: 016
  44. LEVOTHYROXINE [Concomitant]
     Active Substance: LEVOTHYROXINE
     Indication: Product used for unknown indication
  45. ORUVAIL [Concomitant]
     Active Substance: KETOPROFEN
     Indication: Empty sella syndrome
     Route: 065
  46. ORUVAIL [Concomitant]
     Active Substance: KETOPROFEN

REACTIONS (12)
  - Lower respiratory tract infection [Not Recovered/Not Resolved]
  - Pulmonary pain [Unknown]
  - Product dose omission issue [Unknown]
  - Overdose [Unknown]
  - Abdominal discomfort [Unknown]
  - Knee arthroplasty [Unknown]
  - Rash [Not Recovered/Not Resolved]
  - Drug abuse [Unknown]
  - Off label use [Unknown]
  - Arthropathy [Unknown]
  - Intentional product misuse [Unknown]
  - Arthropathy [Unknown]

NARRATIVE: CASE EVENT DATE: 20201001
